FAERS Safety Report 16126268 (Version 1)
Quarter: 2019Q1

REPORT INFORMATION
  Report Type: Report from Study
  Country: US (occurrence: US)
  Receive Date: 20190328
  Receipt Date: 20190328
  Transmission Date: 20190418
  Serious: Yes (Other)
  Sender: FDA-Public Use
  Company Number: US-SA-2018SA023991

PATIENT
  Age: 52 Year
  Sex: Male

DRUGS (1)
  1. INSULIN GLARGINE [Suspect]
     Active Substance: INSULIN GLARGINE
     Indication: TYPE 2 DIABETES MELLITUS
     Dosage: 13 UNITS IN THE AM AND 13 UNITS ,BID
     Route: 051
     Dates: start: 20170801

REACTIONS (7)
  - Hypoglycaemia [Unknown]
  - Product use issue [Unknown]
  - Pancreatic disorder [Recovering/Resolving]
  - Hyperhidrosis [Unknown]
  - Weight increased [Unknown]
  - Syncope [Unknown]
  - Blood glucose abnormal [Recovering/Resolving]
